FAERS Safety Report 24830601 (Version 1)
Quarter: 2025Q1

REPORT INFORMATION
  Report Type: Spontaneous
  Country: FR (occurrence: FR)
  Receive Date: 20250110
  Receipt Date: 20250110
  Transmission Date: 20250408
  Serious: Yes (Life-Threatening, Hospitalization, Other)
  Sender: RANBAXY
  Company Number: FR-SUN PHARMACEUTICAL INDUSTRIES LTD-2024RR-488353

PATIENT
  Age: 22 Year
  Sex: Female
  Weight: 60 kg

DRUGS (4)
  1. PAROXETINE [Suspect]
     Active Substance: PAROXETINE
     Indication: Schizoaffective disorder
     Dosage: 20 MILLIGRAM, DAILY
     Route: 048
     Dates: end: 20240824
  2. QUETIAPINE [Suspect]
     Active Substance: QUETIAPINE
     Indication: Schizoaffective disorder
     Dosage: 700 MILLIGRAM, DAILY
     Route: 048
     Dates: end: 20240824
  3. COCAINE [Suspect]
     Active Substance: COCAINE
     Indication: Product used for unknown indication
     Route: 055
     Dates: end: 20240824
  4. LOXAPINE [Suspect]
     Active Substance: LOXAPINE
     Indication: Agitation
     Dosage: 100 MILLIGRAM, DAILY
     Route: 030
     Dates: start: 20240824, end: 20240824

REACTIONS (8)
  - Drug abuse [Recovered/Resolved]
  - Agitation [Recovered/Resolved]
  - Neuroleptic malignant syndrome [Recovered/Resolved]
  - Rhabdomyolysis [Recovered/Resolved]
  - Acute kidney injury [Recovered/Resolved]
  - Hepatic failure [Recovered/Resolved]
  - Stress cardiomyopathy [Recovered/Resolved]
  - Withdrawal syndrome [Recovered/Resolved]

NARRATIVE: CASE EVENT DATE: 20240824
